FAERS Safety Report 9099146 (Version 4)
Quarter: 2013Q2

REPORT INFORMATION
  Report Type: Spontaneous
  Country: US (occurrence: US)
  Receive Date: 20130214
  Receipt Date: 20130531
  Transmission Date: 20140414
  Serious: No
  Sender: FDA-Public Use
  Company Number: US-009507513-1301USA007157

PATIENT
  Age: 75 Year
  Sex: Female

DRUGS (11)
  1. AZASITE [Suspect]
     Indication: DRY EYE
     Dosage: 1 GTT, QPM
     Route: 047
     Dates: start: 201210
  2. OMEPRAZOLE [Concomitant]
     Indication: REFLUX GASTRITIS
  3. LISINOPRIL [Concomitant]
     Indication: HYPERTENSION
  4. TOPAMAX [Concomitant]
  5. VICODIN [Concomitant]
  6. ALLOPURINOL [Concomitant]
  7. VITAMIN B (UNSPECIFIED) [Concomitant]
  8. TOVIAZ [Concomitant]
  9. VITAMIN E [Concomitant]
  10. VITAMINS (UNSPECIFIED) [Concomitant]
  11. LIDODERM [Concomitant]
     Indication: PAIN

REACTIONS (9)
  - Eye irritation [Unknown]
  - Eye pain [Unknown]
  - Drug dose omission [Unknown]
  - Drug dose omission [Unknown]
  - Product packaging quantity issue [Unknown]
  - Product lot number issue [Unknown]
  - Product packaging issue [Unknown]
  - Off label use [Unknown]
  - No adverse event [Unknown]
